FAERS Safety Report 5956349-4 (Version None)
Quarter: 2008Q4

REPORT INFORMATION
  Report Type: 
  Country: None (occurrence: None)
  Receive Date: 20081118
  Receipt Date: 20081103
  Transmission Date: 20090506
  Serious: Yes (Death, Other)
  Sender: FDA-Public Use
  Company Number: US-BAYER-200814275BCC

PATIENT
  Age: 2 Year
  Sex: Female

DRUGS (1)
  1. ALKA SELTZER PLUS [Suspect]
     Indication: ACCIDENTAL EXPOSURE
     Dates: start: 20080801

REACTIONS (1)
  - HYPERSENSITIVITY [None]
